FAERS Safety Report 5428409-8 (Version None)
Quarter: 2007Q3

REPORT INFORMATION
  Report Type: 
  Country: None (occurrence: None)
  Receive Date: 20070828
  Receipt Date: 20070824
  Transmission Date: 20080115
  Serious: Yes (Hospitalization)
  Sender: FDA-Public Use
  Company Number: US-MERCK-0708USA03647

PATIENT
  Age: 53 Year
  Sex: Male

DRUGS (5)
  1. JANUVIA [Suspect]
     Indication: DIABETES MELLITUS
     Route: 048
     Dates: start: 20070801
  2. [THERAPY UNSPECIFIED] [Concomitant]
     Route: 065
  3. ACTOS [Concomitant]
     Route: 065
  4. METFORMIN [Suspect]
     Route: 065
     Dates: end: 20070801
  5. IBUPROFEN [Suspect]
     Route: 065

REACTIONS (2)
  - DEHYDRATION [None]
  - RENAL FAILURE [None]
